FAERS Safety Report 5489793-2 (Version None)
Quarter: 2007Q4

REPORT INFORMATION
  Report Type: 
  Country: None (occurrence: None)
  Receive Date: 20071018
  Receipt Date: 20071004
  Transmission Date: 20080405
  Serious: Yes (Hospitalization, Other)
  Sender: FDA-Public Use
  Company Number: US-ELI_LILLY_AND_COMPANY-US200710001294

PATIENT
  Sex: Female

DRUGS (4)
  1. EVISTA [Suspect]
     Dosage: 60 MG, DAILY (1/D)
     Route: 048
     Dates: start: 19990101
  2. VITAMINS NOS [Concomitant]
  3. PRILOSEC [Concomitant]
  4. THYROID TAB [Concomitant]

REACTIONS (7)
  - BLOOD PRESSURE INCREASED [None]
  - BONE DENSITY DECREASED [None]
  - CEREBROVASCULAR ACCIDENT [None]
  - DRUG INEFFECTIVE [None]
  - LIMB DISCOMFORT [None]
  - PAIN IN EXTREMITY [None]
  - THROMBOSIS [None]
